FAERS Safety Report 25220734 (Version 1)
Quarter: 2025Q2

REPORT INFORMATION
  Report Type: Spontaneous
  Country: US (occurrence: None)
  Receive Date: 20250420
  Receipt Date: 20250420
  Transmission Date: 20250716
  Serious: Yes (unspecified)
  Sender: FDA-CTU
  Company Number: None

PATIENT
  Age: 54 Year
  Sex: Male
  Weight: 114.75 kg

DRUGS (11)
  1. KERASAL [Suspect]
     Active Substance: MENTHOL
     Indication: Fungal foot infection
     Dosage: AT BEDTIME TRANSDERMAL ?
     Route: 062
     Dates: start: 20240710, end: 20240711
  2. LIPITOR [Concomitant]
     Active Substance: ATORVASTATIN CALCIUM
  3. CIALIS [Concomitant]
     Active Substance: TADALAFIL
  4. AMBIEN [Concomitant]
     Active Substance: ZOLPIDEM TARTRATE
  5. MULTI-VITAMIN [Concomitant]
     Active Substance: .ALPHA.-TOCOPHEROL ACETATE, DL-\ASCORBIC ACID\CYANOCOBALAMIN\FLUORIDE ION\FOLIC ACID\NIACIN\PYRIDOXI
  6. FISH OIL [Suspect]
     Active Substance: FISH OIL
  7. NIACIN [Concomitant]
     Active Substance: NIACIN
  8. MAGNESIUM [Concomitant]
     Active Substance: MAGNESIUM
  9. VITAMIN D [Concomitant]
     Active Substance: VITAMIN D NOS
  10. ZYRTEC [Concomitant]
     Active Substance: CETIRIZINE HYDROCHLORIDE
  11. FLONASE [Concomitant]
     Active Substance: FLUTICASONE PROPIONATE

REACTIONS (6)
  - Application site laceration [None]
  - Pain [None]
  - Erythema [None]
  - Peripheral swelling [None]
  - Peripheral swelling [None]
  - Hidradenitis [None]

NARRATIVE: CASE EVENT DATE: 20240710
